FAERS Safety Report 23380924 (Version 1)
Quarter: 2024Q1

REPORT INFORMATION
  Report Type: Spontaneous
  Country: US (occurrence: US)
  Receive Date: 20240109
  Receipt Date: 20240109
  Transmission Date: 20240409
  Serious: No
  Sender: FDA-Public Use
  Company Number: US-GLENMARK PHARMACEUTICALS-2023GMK086005

PATIENT

DRUGS (1)
  1. AZELAIC ACID [Suspect]
     Active Substance: AZELAIC ACID
     Indication: Product used for unknown indication
     Dosage: UNK, BID, TWICE A DAY
     Route: 065
     Dates: start: 20210812

REACTIONS (4)
  - Expired product administered [Unknown]
  - Product storage error [Unknown]
  - Product administration error [Unknown]
  - Drug ineffective [Unknown]
